FAERS Safety Report 15297832 (Version 1)
Quarter: 2018Q3

REPORT INFORMATION
  Report Type: Spontaneous
  Country: US (occurrence: US)
  Receive Date: 20180820
  Receipt Date: 20180820
  Transmission Date: 20181010
  Serious: No
  Sender: FDA-Public Use
  Company Number: US-ENDO PHARMACEUTICALS INC-2018-016806

PATIENT
  Sex: Female

DRUGS (1)
  1. DELESTROGEN [Suspect]
     Active Substance: ESTRADIOL VALERATE
     Indication: HORMONE REPLACEMENT THERAPY
     Dosage: 20 MG/ML, UNKNOWN
     Route: 030

REACTIONS (2)
  - Migraine [Unknown]
  - Feeling abnormal [Unknown]

NARRATIVE: CASE EVENT DATE: 20180125
